FAERS Safety Report 5239518-0 (Version None)
Quarter: 2007Q1

REPORT INFORMATION
  Report Type: 
  Country: None (occurrence: None)
  Receive Date: 20070212
  Receipt Date: 20070127
  Transmission Date: 20070707
  Serious: Yes (Other)
  Sender: FDA-Public Use
  Company Number: 15583

PATIENT
  Age: 56 Year
  Sex: Female

DRUGS (3)
  1. EPIRUBICIN [Suspect]
     Indication: BREAST CANCER
     Dosage: 140 MG TOTAL IPL
     Route: 034
  2. FLUOROURACIL [Suspect]
     Indication: BREAST CANCER
     Dosage: 1150 MG PER_CYCLE IPL
     Route: 034
  3. CYCLOPHOSPHAMIDE [Suspect]
     Indication: BREAST CANCER
     Dosage: 1150 MG PER_CYCLE IPL
     Route: 034

REACTIONS (12)
  - ABDOMINAL PAIN [None]
  - CHEST PAIN [None]
  - DEVICE MIGRATION [None]
  - DRUG ADMINISTRATION ERROR [None]
  - EMPYEMA [None]
  - IATROGENIC INJURY [None]
  - IMPLANT SITE EXTRAVASATION [None]
  - INCORRECT ROUTE OF DRUG ADMINISTRATION [None]
  - NO THERAPEUTIC RESPONSE [None]
  - PAIN [None]
  - PLEURAL EFFUSION [None]
  - PLEURAL FIBROSIS [None]
